FAERS Safety Report 5161129-6 (Version None)
Quarter: 2006Q4

REPORT INFORMATION
  Report Type: 
  Country: None (occurrence: None)
  Receive Date: 20061121
  Receipt Date: 20061106
  Transmission Date: 20070319
  Serious: Yes (Other)
  Sender: FDA-Public Use
  Company Number: 2006137037

PATIENT
  Age: 62 Year
  Sex: Male
  Weight: 81 kg

DRUGS (7)
  1. PREGABALIN (PREGABALIN) [Suspect]
     Indication: NEURALGIA
     Dosage: 450 MG (450 MG, 1 IN 1 D), ORAL
     Route: 048
     Dates: start: 20061001, end: 20061001
  2. ACETYLSALICYLIC ACID SRT [Concomitant]
  3. ATENOLOL [Concomitant]
  4. ISOSORBIDE (ISOSORBIDE) [Concomitant]
  5. METFORMIN HCL [Concomitant]
  6. RAMIPRIL [Concomitant]
  7. ROSUVASTATIN (ROSUVASTATIN) [Concomitant]

REACTIONS (2)
  - CONVULSION [None]
  - MUSCLE TWITCHING [None]
